FAERS Safety Report 22339259 (Version 1)
Quarter: 2023Q2

REPORT INFORMATION
  Report Type: Spontaneous
  Country: RO (occurrence: RO)
  Receive Date: 20230518
  Receipt Date: 20230518
  Transmission Date: 20230722
  Serious: Yes (Hospitalization)
  Sender: FDA-Public Use
  Company Number: RO-PFIZER INC-PV202300086396

PATIENT
  Age: 44 Year
  Sex: Female

DRUGS (2)
  1. IBRANCE [Suspect]
     Active Substance: PALBOCICLIB
     Dosage: UNK
  2. LETROZOLE [Suspect]
     Active Substance: LETROZOLE
     Dosage: UNK

REACTIONS (4)
  - Oesophagitis [Recovered/Resolved]
  - Dysphagia [Recovered/Resolved]
  - Odynophagia [Recovered/Resolved]
  - Fatigue [Recovered/Resolved]
